FAERS Safety Report 6181536-2 (Version None)
Quarter: 2009Q2

REPORT INFORMATION
  Report Type: 
  Country: None (occurrence: None)
  Receive Date: 20090504
  Receipt Date: 20090421
  Transmission Date: 20091009
  Serious: Yes (Other)
  Sender: FDA-Public Use
  Company Number: 8045430

PATIENT
  Age: 28 Year
  Sex: Male

DRUGS (3)
  1. KEPPRA [Suspect]
     Indication: CONVULSION
  2. CARBAMAZEPINE [Concomitant]
  3. AMITRIPTLINE HYDROCHLORIDE TAB [Concomitant]

REACTIONS (1)
  - OSTEONECROSIS [None]
